FAERS Safety Report 8579463-6 (Version None)
Quarter: 2012Q3

REPORT INFORMATION
  Report Type: 
  Country: None (occurrence: None)
  Receive Date: 20120808
  Receipt Date: 20101202
  Transmission Date: 20120928
  Serious: Yes (Hospitalization, Disabling, Other)
  Sender: FDA-Public Use
  Company Number: US-GLAXOSMITHKLINE-A0899130A

PATIENT
  Sex: Male

DRUGS (1)
  1. AVANDIA [Suspect]
     Indication: DIABETES MELLITUS
     Dosage: 4MG PER DAY
     Route: 048
     Dates: start: 20060101, end: 20090101

REACTIONS (6)
  - INJURY [None]
  - DURAL FISTULA [None]
  - ARTERIOVENOUS FISTULA [None]
  - STENT PLACEMENT [None]
  - CORONARY ARTERY DISEASE [None]
  - CEREBRAL THROMBOSIS [None]
